FAERS Safety Report 10990798 (Version 1)
Quarter: 2015Q2

REPORT INFORMATION
  Report Type: Spontaneous
  Country: FR (occurrence: FR)
  Receive Date: 20150406
  Receipt Date: 20150406
  Transmission Date: 20150821
  Serious: Yes (Hospitalization)
  Sender: FDA-Public Use
  Company Number: FR-GE HEALTHCARE MEDICAL DIAGNOSTICS-VISP-PR-1503S-0090

PATIENT
  Age: 72 Year
  Sex: Male

DRUGS (11)
  1. AMAREL [Concomitant]
     Active Substance: GLIMEPIRIDE
  2. CRESTOR [Concomitant]
     Active Substance: ROSUVASTATIN CALCIUM
  3. DICLOFENAC [Concomitant]
     Active Substance: DICLOFENAC
  4. VISIPAQUE [Suspect]
     Active Substance: IODIXANOL
     Indication: DIAGNOSTIC PROCEDURE
  5. LERCAN [Concomitant]
     Active Substance: LERCANIDIPINE
  6. TAMSULOSINE [Concomitant]
     Active Substance: TAMSULOSIN HYDROCHLORIDE
  7. PIASCLEDINE [Concomitant]
     Active Substance: AVOCADO OIL\SOYBEAN OIL
  8. VISIPAQUE [Suspect]
     Active Substance: IODIXANOL
     Indication: URINARY BLADDER POLYP
     Route: 042
     Dates: start: 20150309, end: 20150309
  9. MICARDIS [Concomitant]
     Active Substance: TELMISARTAN
  10. NEBILOX [Concomitant]
     Active Substance: NEBIVOLOL HYDROCHLORIDE
  11. METFORMINE [Concomitant]
     Active Substance: METFORMIN HYDROCHLORIDE

REACTIONS (4)
  - Hypertension [Recovered/Resolved]
  - Dyspnoea [Recovered/Resolved]
  - Erythema [Recovered/Resolved]
  - Cough [Recovered/Resolved]

NARRATIVE: CASE EVENT DATE: 20150309
